FAERS Safety Report 9397742 (Version 3)
Quarter: 2014Q1

REPORT INFORMATION
  Report Type: Spontaneous
  Country: IT (occurrence: IT)
  Receive Date: 20130712
  Receipt Date: 20140224
  Transmission Date: 20141002
  Serious: Yes (Hospitalization)
  Sender: FDA-Public Use
  Company Number: IT-SANOFI-AVENTIS-2013SA068458

PATIENT
  Age: 43 Year
  Sex: Male

DRUGS (7)
  1. FUROSEMIDE [Suspect]
     Indication: CARDIAC FAILURE
     Route: 048
     Dates: start: 20110101, end: 20130513
  2. ZAROXOLYN [Suspect]
     Indication: OLIGURIA
     Dosage: DOSE:1 UNIT(S)
     Route: 048
     Dates: start: 20130503, end: 20130511
  3. CARDIOASPIRIN [Concomitant]
  4. ENALAPRIL MALEATE [Concomitant]
  5. CARVEDILOL [Concomitant]
  6. AMIODARONE [Concomitant]
  7. DIGOXIN [Concomitant]

REACTIONS (2)
  - Asthenia [Recovered/Resolved]
  - Hypokalaemia [Recovered/Resolved]
